FAERS Safety Report 4791590-8 (Version None)
Quarter: 2005Q4

REPORT INFORMATION
  Report Type: 
  Country: None (occurrence: None)
  Receive Date: 20051007
  Receipt Date: 20050425
  Transmission Date: 20060501
  Serious: No
  Sender: FDA-Public Use
  Company Number: US-BRISTOL-MYERS SQUIBB COMPANY-12945481

PATIENT
  Age: 69 Year
  Sex: Female
  Weight: 44 kg

DRUGS (6)
  1. AVAPRO [Suspect]
     Indication: HYPERTENSION
     Dates: start: 20040901
  2. PREMARIN [Concomitant]
  3. DOXYCYCLINE [Concomitant]
  4. NIZATIDINE [Concomitant]
  5. CLORAZEPATE DIPOTASSIUM [Concomitant]
  6. NASONEX [Concomitant]

REACTIONS (4)
  - DIZZINESS [None]
  - DRUG INEFFECTIVE [None]
  - FATIGUE [None]
  - HYPOTRICHOSIS [None]
